FAERS Safety Report 6665178-8 (Version None)
Quarter: 2010Q2

REPORT INFORMATION
  Report Type: 
  Country: None (occurrence: None)
  Receive Date: 20100402
  Receipt Date: 20100325
  Transmission Date: 20101027
  Serious: Yes (Hospitalization)
  Sender: FDA-Public Use
  Company Number: JP-BRISTOL-MYERS SQUIBB COMPANY-15036312

PATIENT
  Age: 7 Decade
  Sex: Male

DRUGS (2)
  1. MAXIPIME [Suspect]
     Indication: PNEUMONIA
     Route: 041
     Dates: start: 20100301, end: 20100324
  2. AMARYL [Concomitant]
     Route: 048

REACTIONS (1)
  - STEVENS-JOHNSON SYNDROME [None]
